FAERS Safety Report 21724863 (Version 2)
Quarter: 2023Q1

REPORT INFORMATION
  Report Type: Spontaneous
  Country: US (occurrence: US)
  Receive Date: 20221214
  Receipt Date: 20230321
  Transmission Date: 20230417
  Serious: No
  Sender: FDA-Public Use
  Company Number: US-GLENMARK PHARMACEUTICALS-2022GMK076122

PATIENT

DRUGS (7)
  1. URSODIOL [Suspect]
     Active Substance: URSODIOL
     Indication: Primary biliary cholangitis
     Dosage: 500 MILLIGRAM, BID
     Route: 048
     Dates: start: 20220923, end: 20221008
  2. URSODIOL [Suspect]
     Active Substance: URSODIOL
     Dosage: 500 MILLIGRAM, BID
     Route: 048
     Dates: start: 20221015, end: 20221206
  3. URSODIOL [Suspect]
     Active Substance: URSODIOL
     Dosage: 250 MILLIGRAM, TID
     Route: 048
     Dates: start: 20221206
  4. MODAFINIL [Concomitant]
     Active Substance: MODAFINIL
     Indication: Hypersomnia
     Dosage: 200 MILLIGRAM, OD
     Route: 048
  5. LEXAPRO [Concomitant]
     Active Substance: ESCITALOPRAM OXALATE
     Indication: Generalised anxiety disorder
     Dosage: 20 MILLIGRAM, OD
     Route: 048
  6. METHOTREXATE [Concomitant]
     Active Substance: METHOTREXATE
     Indication: Rheumatoid arthritis
     Dosage: 20 MILLIGRAM, QW
     Route: 048
  7. ATORVASTATIN [Concomitant]
     Active Substance: ATORVASTATIN
     Indication: Blood cholesterol increased
     Dosage: 10 MILLIGRAM, OD
     Route: 048

REACTIONS (3)
  - Paraesthesia [Recovered/Resolved]
  - Headache [Recovered/Resolved]
  - Dizziness [Recovered/Resolved]

NARRATIVE: CASE EVENT DATE: 20220101
